FAERS Safety Report 17820245 (Version 1)
Quarter: 2020Q2

REPORT INFORMATION
  Report Type: Other
  Country: HR (occurrence: HR)
  Receive Date: 20200525
  Receipt Date: 20200525
  Transmission Date: 20200714
  Serious: Yes (Other)
  Sender: FDA-Public Use
  Company Number: HR-HEALTHCARE PHARMACEUTICALS LTD.-2084144

PATIENT
  Age: 40 Year
  Sex: Female

DRUGS (7)
  1. VINCRISTINE SULFATE. [Suspect]
     Active Substance: VINCRISTINE SULFATE
     Route: 065
  2. RITUXIMAB. [Suspect]
     Active Substance: RITUXIMAB
     Route: 065
  3. METHYLPREDNISOLONE. [Suspect]
     Active Substance: METHYLPREDNISOLONE
     Route: 065
  4. CYCLOPHOSPHAMIDE. [Suspect]
     Active Substance: CYCLOPHOSPHAMIDE
     Route: 065
  5. ETOPOSIDE. [Suspect]
     Active Substance: ETOPOSIDE
     Route: 065
  6. DOXORUBICIN HYDROCHLORIDE. [Suspect]
     Active Substance: DOXORUBICIN HYDROCHLORIDE
     Indication: DIFFUSE LARGE B-CELL LYMPHOMA STAGE IV
     Route: 065
  7. VINBLASTINE SULFATE. [Suspect]
     Active Substance: VINBLASTINE SULFATE
     Route: 065

REACTIONS (5)
  - Congestive cardiomyopathy [Unknown]
  - Refractory anaemia with an excess of blasts [Unknown]
  - Acute myeloid leukaemia [Unknown]
  - Pancytopenia [Unknown]
  - Thrombocytopenia [Unknown]
